FAERS Safety Report 4789608-1 (Version None)
Quarter: 2005Q4

REPORT INFORMATION
  Report Type: 
  Country: None (occurrence: None)
  Receive Date: 20051004
  Receipt Date: 20050921
  Transmission Date: 20060501
  Serious: Yes (Other)
  Sender: FDA-Public Use
  Company Number: USA050598662

PATIENT
  Age: 86 Year
  Sex: Female

DRUGS (10)
  1. FORTEO [Suspect]
     Indication: OSTEOPOROSIS
     Dates: start: 20050101
  2. EVISTA [Suspect]
     Indication: OSTEOPOROSIS
     Dates: start: 20040501
  3. LIPITOR [Concomitant]
  4. TOPROL-XL [Concomitant]
  5. ALTACE [Concomitant]
  6. LEVOXYL [Concomitant]
  7. PROTONIX [Concomitant]
  8. SINGULAIR [Concomitant]
  9. COUMADIN [Concomitant]
  10. LASIX [Concomitant]

REACTIONS (2)
  - FALL [None]
  - LOWER LIMB FRACTURE [None]
